FAERS Safety Report 23381502 (Version 1)
Quarter: 2024Q1

REPORT INFORMATION
  Report Type: Spontaneous
  Country: FR (occurrence: FR)
  Receive Date: 20240109
  Receipt Date: 20240109
  Transmission Date: 20240410
  Serious: Yes (Life-Threatening, Other)
  Sender: FDA-Public Use
  Company Number: FR-AFSSAPS-AN2023001699

PATIENT
  Age: 54 Year
  Sex: Female
  Weight: 44 kg

DRUGS (14)
  1. KETOPROFEN [Suspect]
     Active Substance: KETOPROFEN
     Indication: Headache
     Dosage: 100 MILLIGRAM, AS NECESSARY
     Route: 042
     Dates: start: 20231205, end: 20231207
  2. PANTOPRAZOLE [Suspect]
     Active Substance: PANTOPRAZOLE
     Indication: Abdominal pain
     Dosage: 20 MILLIGRAM, ONCE A DAY
     Route: 042
     Dates: start: 20231124
  3. ACETAMINOPHEN [Suspect]
     Active Substance: ACETAMINOPHEN
     Indication: Abdominal pain
     Dosage: 3 GRAM, ONCE A DAY
     Route: 042
     Dates: start: 20231125
  4. PHLOROGLUCINOL [Suspect]
     Active Substance: PHLOROGLUCINOL
     Indication: Abdominal pain
     Dosage: 80 MILLIGRAM, ONCE A DAY
     Route: 042
     Dates: start: 20231124
  5. AMITRIPTYLINE HYDROCHLORIDE [Suspect]
     Active Substance: AMITRIPTYLINE HYDROCHLORIDE
     Indication: Pain
     Dosage: 12.5 MILLIGRAM, AS NECESSARY
     Route: 042
     Dates: start: 20231205
  6. PRAZEPAM [Suspect]
     Active Substance: PRAZEPAM
     Indication: Anxiety
     Dosage: 1 MILLIGRAM, ONCE A DAY
     Route: 048
     Dates: start: 20231205
  7. DIETARY SUPPLEMENT [Suspect]
     Active Substance: DIETARY SUPPLEMENT
     Indication: Starvation
     Dosage: 1 DOSAGE FORM, ONCE A DAY
     Route: 042
     Dates: start: 20231128
  8. NEFOPAM [Suspect]
     Active Substance: NEFOPAM
     Indication: Abdominal pain
     Dosage: 20 MILLIGRAM, AS NECESSARY
     Route: 042
     Dates: start: 20231124
  9. XOLAIR [Suspect]
     Active Substance: OMALIZUMAB
     Indication: Mast cell activation syndrome
     Dosage: 1 DOSAGE FORM, EVERY 2 WEEK
     Route: 058
     Dates: start: 20231127, end: 20231127
  10. AMINO ACIDS\DEXTROSE\ELECTROLYTES NOS [Suspect]
     Active Substance: AMINO ACIDS\DEXTROSE\ELECTROLYTES NOS
     Indication: Starvation
     Dosage: 0.5 DOSAGE FORM, ONCE A DAY
     Route: 042
     Dates: start: 20231124, end: 20231127
  11. AMINO ACIDS\DEXTROSE\ELECTROLYTES NOS [Suspect]
     Active Substance: AMINO ACIDS\DEXTROSE\ELECTROLYTES NOS
     Dosage: 1 DOSAGE FORM, ONCE A DAY
     Route: 042
     Dates: start: 20231124, end: 20231128
  12. DIETARY SUPPLEMENT [Suspect]
     Active Substance: DIETARY SUPPLEMENT
     Indication: Parenteral nutrition
     Dosage: 1 DOSAGE FORM, ONCE A DAY
     Route: 051
     Dates: start: 20231124, end: 20231127
  13. TRANXENE [Suspect]
     Active Substance: CLORAZEPATE DIPOTASSIUM
     Indication: Anxiety
     Dosage: 30 MILLIGRAM, ONCE A DAY
     Route: 042
     Dates: start: 20231124
  14. CYAMEMAZINE [Suspect]
     Active Substance: CYAMEMAZINE
     Indication: Anxiety
     Dosage: 50 MILLIGRAM, AS NECESSARY
     Route: 042
     Dates: start: 20231203

REACTIONS (1)
  - Pulmonary embolism [Recovered/Resolved]

NARRATIVE: CASE EVENT DATE: 20231204
